FAERS Safety Report 9507644 (Version 1)
Quarter: 2013Q3

REPORT INFORMATION
  Report Type: Spontaneous
  Country: SI (occurrence: None)
  Receive Date: 20130905
  Receipt Date: 20130905
  Transmission Date: 20140515
  Serious: Yes (Hospitalization)
  Sender: FDA-Public Use
  Company Number: IPC201308-000352

PATIENT
  Age: 72 Year
  Sex: Male

DRUGS (5)
  1. CHLOROQUINE PHOSPHATE [Suspect]
     Indication: RHEUMATOID ARTHRITIS
  2. ETORICOXIB [Suspect]
  3. GLIQUIDONE [Suspect]
  4. CANDESARTAN [Suspect]
  5. DILTIAZEM (DILTIAZEM) (DILTIAZEM) [Suspect]

REACTIONS (6)
  - Mania [None]
  - Cerebral atrophy [None]
  - Cerebellar atrophy [None]
  - Arteriosclerosis [None]
  - Cognitive disorder [None]
  - Disturbance in attention [None]
